FAERS Safety Report 5707213-7 (Version None)
Quarter: 2008Q2

REPORT INFORMATION
  Report Type: 
  Country: None (occurrence: None)
  Receive Date: 20080416
  Receipt Date: 20080402
  Transmission Date: 20081010
  Serious: Yes (Death, Other)
  Sender: FDA-Public Use
  Company Number: JP-MERCK-0804USA01546

PATIENT
  Age: 56 Year
  Sex: Male

DRUGS (22)
  1. PRIMAXIN [Suspect]
     Indication: PNEUMONIA ASPIRATION
     Route: 051
  2. CLINDAMYCIN [Suspect]
     Indication: PNEUMONIA ASPIRATION
     Route: 065
  3. CLINDAMYCIN [Suspect]
     Route: 065
  4. MINOCYCLINE HYDROCHLORIDE [Suspect]
     Route: 065
  5. FLUCONAZOLE [Suspect]
     Indication: CANDIDIASIS
     Route: 065
  6. FUNGUARD [Suspect]
     Indication: CANDIDIASIS
     Route: 042
  7. CEFOTIAM [Suspect]
     Route: 065
  8. CIPROFLOXACIN [Suspect]
     Route: 065
  9. TOBRAMYCIN [Suspect]
     Route: 065
  10. TARGOCID [Suspect]
     Route: 042
  11. TARGOCID [Suspect]
     Route: 042
  12. HYDROCORTONE [Suspect]
     Indication: SEPTIC SHOCK
     Route: 051
  13. ARBEKACIN [Suspect]
     Route: 051
  14. CEFMETAZOLE SODIUM [Suspect]
     Route: 051
  15. AZACTAM [Suspect]
     Route: 051
  16. PAZUFLOXACIN MESYLATE [Suspect]
     Route: 051
  17. MEROPEN [Suspect]
     Route: 042
  18. TAZOCIN [Suspect]
     Route: 042
  19. GENTAMICIN [Suspect]
     Route: 065
  20. FLUCONAZOLE [Suspect]
     Route: 065
  21. FLUCONAZOLE [Suspect]
     Indication: TRICHOSPORON INFECTION
     Route: 065
  22. FUNGUARD [Suspect]
     Indication: FUNGAL INFECTION
     Route: 042

REACTIONS (12)
  - AORTIC INJURY [None]
  - ASCITES [None]
  - CANDIDIASIS [None]
  - FUNGAL INFECTION [None]
  - HEPATIC ENZYME INCREASED [None]
  - INFECTION [None]
  - INTESTINAL PERFORATION [None]
  - PSEUDOMONAS INFECTION [None]
  - SEPTIC SHOCK [None]
  - STAPHYLOCOCCAL INFECTION [None]
  - TRACHEO-OESOPHAGEAL FISTULA [None]
  - TRICHOSPORON INFECTION [None]
